FAERS Safety Report 5133617-X (Version None)
Quarter: 2006Q4

REPORT INFORMATION
  Report Type: 
  Country: None (occurrence: None)
  Receive Date: 20061024
  Receipt Date: 20060316
  Transmission Date: 20070319
  Serious: No
  Sender: FDA-Public Use
  Company Number: US-AMGEN-US172612

PATIENT
  Sex: Female

DRUGS (2)
  1. SENSIPAR [Suspect]
     Indication: HYPERPARATHYROIDISM PRIMARY
     Dates: start: 20060217, end: 20060307
  2. ACTONEL [Concomitant]

REACTIONS (2)
  - HERPES SIMPLEX [None]
  - PRURITUS [None]
